FAERS Safety Report 5111655-0 (Version None)
Quarter: 2006Q3

REPORT INFORMATION
  Report Type: 
  Country: None (occurrence: None)
  Receive Date: 20060920
  Receipt Date: 20060920
  Transmission Date: 20061208
  Serious: Yes (Other)
  Sender: FDA-Public Use
  Company Number: None

PATIENT
  Age: 27 Year
  Sex: Male
  Weight: 84.8226 kg

DRUGS (2)
  1. CLOTRIMAZOLE AND BETAMETHASONE DIPROPIONATE [Suspect]
     Indication: ORAL FUNGAL INFECTION
     Dosage: APPPLICATION ON LIP TWICE A DAY TOP
     Route: 061
     Dates: start: 20060605, end: 20060614
  2. MYCOLOG [Suspect]
     Indication: CHEILITIS
     Dosage: APPLICATION ON LIP TWICE A DAY TOP
     Route: 061
     Dates: start: 20060720, end: 20060727

REACTIONS (2)
  - LIP DISORDER [None]
  - LIP EXFOLIATION [None]
